FAERS Safety Report 9919699 (Version 2)
Quarter: 2014Q1

REPORT INFORMATION
  Report Type: Spontaneous
  Country: JP (occurrence: JP)
  Receive Date: 20140224
  Receipt Date: 20140314
  Transmission Date: 20141002
  Serious: Yes (Other)
  Sender: FDA-Public Use
  Company Number: JP-BRISTOL-MYERS SQUIBB COMPANY-20250577

PATIENT
  Age: 77 Year
  Sex: Female

DRUGS (1)
  1. BARACLUDE TABS 0.5 MG [Suspect]
     Indication: CHRONIC HEPATITIS B
     Dosage: THERAPY ON FEB13
     Route: 048
     Dates: start: 2007, end: 201312

REACTIONS (2)
  - Stevens-Johnson syndrome [Recovered/Resolved]
  - Lymphoma [Unknown]
